FAERS Safety Report 18933033 (Version 1)
Quarter: 2021Q1

REPORT INFORMATION
  Report Type: Spontaneous
  Country: US (occurrence: US)
  Receive Date: 20210223
  Receipt Date: 20210223
  Transmission Date: 20210420
  Serious: Yes (Hospitalization)
  Sender: FDA-Public Use
  Company Number: None

PATIENT
  Sex: Female

DRUGS (2)
  1. DALFAMPRIDINE ER 10MG AUROBINDO PHARMA [Suspect]
     Active Substance: DALFAMPRIDINE
     Indication: MULTIPLE SCLEROSIS
     Route: 048
     Dates: start: 201908
  2. REBIF [Suspect]
     Active Substance: INTERFERON BETA-1A
     Indication: MULTIPLE SCLEROSIS
     Dosage: ?          OTHER STRENGTH:44MCG/.5ML;OTHER DOSE:44MCG/.5ML;?
     Route: 058
     Dates: start: 200611

REACTIONS (2)
  - Renal failure [None]
  - Therapy interrupted [None]
